FAERS Safety Report 7823662-5 (Version None)
Quarter: 2011Q4

REPORT INFORMATION
  Report Type: 
  Country: None (occurrence: None)
  Receive Date: 20111019
  Receipt Date: 20111019
  Transmission Date: 20120403
  Serious: Yes (Other)
  Sender: FDA-Public Use
  Company Number: None

PATIENT
  Age: 44 Year
  Sex: Female
  Weight: 58.967 kg

DRUGS (1)
  1. FLUOXETINE [Suspect]
     Indication: DEPRESSION
     Dosage: 5MG
     Route: 048
     Dates: start: 20030101, end: 20111018

REACTIONS (14)
  - FATIGUE [None]
  - UNEVALUABLE EVENT [None]
  - DRUG DEPENDENCE [None]
  - ANXIETY [None]
  - DRUG INEFFECTIVE [None]
  - DRUG WITHDRAWAL SYNDROME [None]
  - ABDOMINAL DISCOMFORT [None]
  - INSOMNIA [None]
  - TREMOR [None]
  - HEADACHE [None]
  - NASAL CONGESTION [None]
  - VERTIGO [None]
  - FEAR [None]
  - RHINORRHOEA [None]
